FAERS Safety Report 13303379 (Version 1)
Quarter: 2017Q1

REPORT INFORMATION
  Report Type: Other
  Country: AU (occurrence: AU)
  Receive Date: 20170307
  Receipt Date: 20170307
  Transmission Date: 20170428
  Serious: Yes (Other)
  Sender: FDA-Public Use
  Company Number: AU-SYMPLMED PHARMACEUTICALS-2017SYMPLMED000436

PATIENT

DRUGS (2)
  1. COVERAM [Suspect]
     Active Substance: AMLODIPINE\PERINDOPRIL
     Indication: PRODUCT USED FOR UNKNOWN INDICATION
     Dosage: 1 (10MG/5MG) TABLET, QD
     Route: 048
     Dates: start: 201606
  2. DIAFORMIN [Suspect]
     Active Substance: METFORMIN HYDROCHLORIDE
     Indication: PRODUCT USED FOR UNKNOWN INDICATION
     Dosage: 1000 MG, QD
     Route: 048
     Dates: start: 201606

REACTIONS (1)
  - Lip blister [Not Recovered/Not Resolved]

NARRATIVE: CASE EVENT DATE: 20160915
